FAERS Safety Report 21364372 (Version 5)
Quarter: 2022Q4

REPORT INFORMATION
  Report Type: Spontaneous
  Country: AT (occurrence: AT)
  Receive Date: 20220922
  Receipt Date: 20221228
  Transmission Date: 20230113
  Serious: Yes (Hospitalization, Other)
  Sender: FDA-Public Use
  Company Number: AT-SA-SAC20220921000251

PATIENT
  Age: 38 Year
  Sex: Male

DRUGS (11)
  1. DUPIXENT [Suspect]
     Active Substance: DUPILUMAB
     Indication: Dermatitis atopic
     Dosage: 300 MG
     Route: 065
     Dates: start: 202011, end: 202207
  2. PREGABALIN [Concomitant]
     Active Substance: PREGABALIN
  3. TAMSULOSIN [Concomitant]
     Active Substance: TAMSULOSIN
  4. TRIPRIM [TRIMETHOPRIM] [Concomitant]
  5. DICLOFENAC SODIUM\ORPHENADRINE CITRATE [Concomitant]
     Active Substance: DICLOFENAC SODIUM\ORPHENADRINE CITRATE
  6. VITAMINS WITH MINERALS [Concomitant]
     Active Substance: MINERALS\VITAMINS
     Route: 048
  7. NAPROXEN [Concomitant]
     Active Substance: NAPROXEN
     Dosage: 500 MG, PRN
     Route: 048
  8. BUTYLSCOPOLAMINE BROMIDE [Concomitant]
     Active Substance: BUTYLSCOPOLAMINE BROMIDE
     Indication: Muscle spasms
     Dosage: 10 MG, PRN
     Route: 048
  9. FOLIC ACID [Concomitant]
     Active Substance: FOLIC ACID
     Dosage: 5 MG, PRN
     Route: 048
  10. METHOTREXATE SODIUM [Concomitant]
     Active Substance: METHOTREXATE SODIUM
     Dosage: 15 MG, QW
     Route: 048
  11. CORTISONE [Concomitant]
     Active Substance: CORTISONE

REACTIONS (11)
  - Inflammation [Not Recovered/Not Resolved]
  - Myalgia [Unknown]
  - Polymyalgia rheumatica [Unknown]
  - Muscle fatigue [Not Recovered/Not Resolved]
  - Musculoskeletal discomfort [Not Recovered/Not Resolved]
  - Pain [Not Recovered/Not Resolved]
  - Weight decreased [Unknown]
  - Urinary tract infection [Unknown]
  - Synovitis [Unknown]
  - Tenosynovitis [Unknown]
  - Arthralgia [Recovering/Resolving]
